FAERS Safety Report 10696855 (Version 2)
Quarter: 2015Q1

REPORT INFORMATION
  Report Type: Spontaneous
  Country: US (occurrence: US)
  Receive Date: 20150108
  Receipt Date: 20150108
  Transmission Date: 20150721
  Serious: Yes (Hospitalization)
  Sender: FDA-Public Use
  Company Number: US-CIPLA LTD.-2014US02934

PATIENT

DRUGS (1)
  1. TOPIRAMATE. [Suspect]
     Active Substance: TOPIRAMATE
     Indication: SEIZURE
     Dosage: UNK

REACTIONS (5)
  - Metabolic acidosis [Unknown]
  - Lactic acidosis [Unknown]
  - Hypokalaemia [Recovered/Resolved]
  - Septic shock [Unknown]
  - Pneumonia [Unknown]
